FAERS Safety Report 10869485 (Version 3)
Quarter: 2018Q3

REPORT INFORMATION
  Report Type: Report from Study
  Country: US (occurrence: US)
  Receive Date: 20150226
  Receipt Date: 20180925
  Transmission Date: 20181010
  Serious: Yes (Death, Life-Threatening, Hospitalization, Other)
  Sender: FDA-Public Use
  Company Number: US-ACTELION-A-NJ2014-105155

PATIENT
  Age: 82 Year
  Sex: Female
  Weight: 68.27 kg

DRUGS (16)
  1. OPSUMIT [Suspect]
     Active Substance: MACITENTAN
     Indication: PULMONARY ARTERIAL HYPERTENSION
     Dosage: 10 MG, QD
     Route: 048
     Dates: start: 20140703, end: 20160229
  2. METOPROLOL TARTRATE. [Concomitant]
     Active Substance: METOPROLOL TARTRATE
  3. POTASSIUM CHLORIDE. [Concomitant]
     Active Substance: POTASSIUM CHLORIDE
  4. TADALAFIL [Concomitant]
     Active Substance: TADALAFIL
  5. ALEVE [Suspect]
     Active Substance: NAPROXEN SODIUM
     Indication: BACK PAIN
     Dosage: UNK, PRN
     Route: 048
     Dates: start: 20081113
  6. COUMADIN [Suspect]
     Active Substance: WARFARIN SODIUM
     Indication: PRODUCT USED FOR UNKNOWN INDICATION
     Dosage: 6 MG, UNK
     Route: 065
     Dates: start: 20081113, end: 20140905
  7. OXYGEN. [Concomitant]
     Active Substance: OXYGEN
     Dosage: UNK
     Dates: start: 20121015
  8. DIGOXIN. [Concomitant]
     Active Substance: DIGOXIN
     Dosage: 0.125 MG, QPM
     Route: 048
  9. LASIX [Concomitant]
     Active Substance: FUROSEMIDE
     Dosage: 80 MG, QD
     Route: 048
  10. ALLOPURINOL. [Concomitant]
     Active Substance: ALLOPURINOL
  11. ALEVE [Suspect]
     Active Substance: NAPROXEN SODIUM
     Dosage: UNK
     Route: 048
  12. QUINAPRIL. [Concomitant]
     Active Substance: QUINAPRIL
     Dosage: 5 MG, QD
     Route: 048
  13. TRAMADOL HYDROCHLORIDE. [Concomitant]
     Active Substance: TRAMADOL HYDROCHLORIDE
  14. IRON OXIDES [Concomitant]
     Active Substance: FERRIC OXIDE RED
  15. COUMADIN [Suspect]
     Active Substance: WARFARIN SODIUM
     Dosage: 4.5 MG DAILY EXCEPT SUNDAY
     Route: 065
  16. ZOCOR [Concomitant]
     Active Substance: SIMVASTATIN
     Dosage: 10 MG, QD
     Route: 048

REACTIONS (28)
  - Haemorrhoidal haemorrhage [Fatal]
  - Acute kidney injury [Fatal]
  - Nausea [Fatal]
  - Dyspnoea [Unknown]
  - Pulmonary arterial hypertension [Fatal]
  - White blood cell count increased [Not Recovered/Not Resolved]
  - Dehydration [Fatal]
  - Ascites [Not Recovered/Not Resolved]
  - Blood creatinine increased [Not Recovered/Not Resolved]
  - Aspartate aminotransferase increased [Not Recovered/Not Resolved]
  - Oedema [Unknown]
  - Syncope [Recovered/Resolved]
  - International normalised ratio increased [Not Recovered/Not Resolved]
  - Aspiration pleural cavity [Unknown]
  - Generalised oedema [Fatal]
  - Epistaxis [Recovered/Resolved]
  - Dysuria [Fatal]
  - Diarrhoea [Fatal]
  - Coagulopathy [Unknown]
  - Anaemia [Not Recovered/Not Resolved]
  - Liver function test abnormal [Not Recovered/Not Resolved]
  - Back pain [Unknown]
  - Haemoglobin decreased [Fatal]
  - Hypovolaemia [Not Recovered/Not Resolved]
  - Blood urea increased [Not Recovered/Not Resolved]
  - Right ventricular failure [Fatal]
  - Pleural effusion [Unknown]
  - Blood bilirubin increased [Not Recovered/Not Resolved]

NARRATIVE: CASE EVENT DATE: 20140826
